FAERS Safety Report 16661777 (Version 1)
Quarter: 2019Q3

REPORT INFORMATION
  Report Type: Spontaneous
  Country: US (occurrence: US)
  Receive Date: 20190802
  Receipt Date: 20190802
  Transmission Date: 20191004
  Serious: Yes (Other)
  Sender: FDA-Public Use
  Company Number: None

PATIENT
  Age: 31 Year
  Sex: Female

DRUGS (1)
  1. OMEPRAZOLE. [Suspect]
     Active Substance: OMEPRAZOLE

REACTIONS (10)
  - Syncope [None]
  - Nausea [None]
  - Tremor [None]
  - Dyspepsia [None]
  - Depression [None]
  - Blood glucose decreased [None]
  - Diarrhoea [None]
  - Panic attack [None]
  - Anxiety [None]
  - Memory impairment [None]

NARRATIVE: CASE EVENT DATE: 20181213
